FAERS Safety Report 13245212 (Version 2)
Quarter: 2017Q2

REPORT INFORMATION
  Report Type: Spontaneous
  Country: US (occurrence: US)
  Receive Date: 20170217
  Receipt Date: 20170508
  Transmission Date: 20170830
  Serious: No
  Sender: FDA-Public Use
  Company Number: US-ASTRAZENECA-2017SE09949

PATIENT
  Age: 15247 Day
  Sex: Female

DRUGS (5)
  1. IBRANCE [Suspect]
     Active Substance: PALBOCICLIB
     Indication: BREAST CANCER METASTATIC
     Dosage: RE-STARTED AT REDUCED DOSE
     Route: 048
  2. IBRANCE [Suspect]
     Active Substance: PALBOCICLIB
     Indication: BREAST CANCER METASTATIC
     Route: 048
     Dates: start: 20170106
  3. ZOLADEX [Suspect]
     Active Substance: GOSERELIN ACETATE
     Route: 058
  4. LETROZOLE. [Concomitant]
     Active Substance: LETROZOLE
     Dates: start: 20170104
  5. IBRANCE [Suspect]
     Active Substance: PALBOCICLIB
     Indication: BREAST CANCER METASTATIC
     Dosage: 100 MG DAILY (21 OUT OF 28 DAYS)
     Route: 048
     Dates: start: 20170104

REACTIONS (8)
  - Neuropathy peripheral [Unknown]
  - Full blood count decreased [Unknown]
  - Drug dose omission [Unknown]
  - Constipation [Unknown]
  - Neutropenia [Recovered/Resolved]
  - Product use issue [Unknown]
  - Alopecia [Unknown]
  - Fatigue [Unknown]

NARRATIVE: CASE EVENT DATE: 20170126
